FAERS Safety Report 18244736 (Version 5)
Quarter: 2021Q2

REPORT INFORMATION
  Report Type: Report from Study
  Country: None (occurrence: NL)
  Receive Date: 20200909
  Receipt Date: 20210623
  Transmission Date: 20210717
  Serious: Yes (Other)
  Sender: FDA-Public Use
  Company Number: NL-ABBVIE-18K-114-2274939-00

PATIENT
  Sex: Male
  Weight: 70 kg

DRUGS (6)
  1. DUODOPA [Suspect]
     Active Substance: CARBIDOPA\LEVODOPA
     Dosage: MD 11ML, CD 5.7ML/H, ED 1.0ML
     Route: 050
  2. MOVICOLON [Concomitant]
     Active Substance: POLYETHYLENE GLYCOL 3350\POTASSIUM CHLORIDE\SODIUM BICARBONATE\SODIUM CHLORIDE
     Indication: ABNORMAL FAECES
  3. VITAMIN B [Concomitant]
     Active Substance: VITAMIN B
     Indication: PRODUCT USED FOR UNKNOWN INDICATION
  4. MADOPAR HBKS [Concomitant]
     Indication: PRODUCT USED FOR UNKNOWN INDICATION
  5. MADOPAR DISPERSIBL [Concomitant]
     Active Substance: BENSERAZIDE HYDROCHLORIDE\LEVODOPA
     Indication: PRODUCT USED FOR UNKNOWN INDICATION
  6. DUODOPA [Suspect]
     Active Substance: CARBIDOPA\LEVODOPA
     Indication: PARKINSON^S DISEASE
     Dosage: MD: 11, CD: 5.7, ED: 1
     Route: 050
     Dates: start: 20130710

REACTIONS (32)
  - Bradyphrenia [Not Recovered/Not Resolved]
  - Device occlusion [Unknown]
  - Complication associated with device [Unknown]
  - Stoma site discharge [Recovered/Resolved]
  - Therapeutic product effect delayed [Not Recovered/Not Resolved]
  - Urinary retention [Not Recovered/Not Resolved]
  - Sleep disorder [Recovered/Resolved]
  - Sleep disorder [Recovered/Resolved]
  - Fibroma [Not Recovered/Not Resolved]
  - On and off phenomenon [Not Recovered/Not Resolved]
  - Stoma site haemorrhage [Not Recovered/Not Resolved]
  - Eating disorder [Not Recovered/Not Resolved]
  - Impaired quality of life [Unknown]
  - Thinking abnormal [Not Recovered/Not Resolved]
  - Faeces hard [Not Recovered/Not Resolved]
  - Stoma site reaction [Not Recovered/Not Resolved]
  - Stoma site discharge [Not Recovered/Not Resolved]
  - Speech disorder [Not Recovered/Not Resolved]
  - Fibroma [Recovered/Resolved]
  - Fatigue [Not Recovered/Not Resolved]
  - Stoma site reaction [Recovered/Resolved]
  - Procedural haemorrhage [Unknown]
  - Tremor [Not Recovered/Not Resolved]
  - Stoma site discharge [Recovering/Resolving]
  - Stoma site erythema [Recovered/Resolved]
  - Insomnia [Recovered/Resolved]
  - Initial insomnia [Recovered/Resolved]
  - Urinary tract infection [Recovered/Resolved]
  - Poor quality sleep [Recovered/Resolved]
  - Muscle rigidity [Not Recovered/Not Resolved]
  - Device connection issue [Unknown]
  - Device placement issue [Unknown]

NARRATIVE: CASE EVENT DATE: 2021
